FAERS Safety Report 4595033-9 (Version None)
Quarter: 2005Q1

REPORT INFORMATION
  Report Type: 
  Country: None (occurrence: None)
  Receive Date: 20050225
  Receipt Date: 20050211
  Transmission Date: 20050727
  Serious: Yes (Other)
  Sender: FDA-Public Use
  Company Number: 8009006

PATIENT
  Age: 28 Year
  Sex: Female

DRUGS (7)
  1. KEPPRA [Suspect]
     Indication: CONVULSION
     Dosage: 500 MG 2/D PO
     Route: 048
     Dates: start: 20041127, end: 20041227
  2. KEPPRA [Suspect]
     Indication: PROPHYLAXIS
     Dosage: 500 MG 2/D PO
     Route: 048
     Dates: start: 20041127, end: 20041227
  3. KEPPRA [Suspect]
     Indication: CONVULSION
     Dosage: 50 MG 2/D PO
     Route: 048
     Dates: start: 20050205
  4. KEPPRA [Suspect]
     Indication: PROPHYLAXIS
     Dosage: 50 MG 2/D PO
     Route: 048
     Dates: start: 20050205
  5. KEFLEX [Suspect]
     Dosage: 500 MG 2/D PO
     Route: 048
     Dates: start: 20041224, end: 20050204
  6. FOLIC ACID [Concomitant]
  7. PRENATAL VITAMINS [Concomitant]

REACTIONS (3)
  - CAESAREAN SECTION [None]
  - DRUG EXPOSURE DURING PREGNANCY [None]
  - MEDICATION ERROR [None]
